FAERS Safety Report 5784810-4 (Version None)
Quarter: 2008Q2

REPORT INFORMATION
  Report Type: 
  Country: None (occurrence: None)
  Receive Date: 20080605
  Receipt Date: 20080415
  Transmission Date: 20081010
  Serious: No
  Sender: FDA-Public Use
  Company Number: A0722791A

PATIENT
  Age: 50 Year
  Sex: Female

DRUGS (4)
  1. ALLI [Suspect]
     Route: 048
     Dates: start: 20080210
  2. VALIUM [Concomitant]
  3. ALLEGRA [Concomitant]
  4. PREDNISONE TAB [Concomitant]

REACTIONS (1)
  - CHEST PAIN [None]
